FAERS Safety Report 24388258 (Version 1)
Quarter: 2024Q4

REPORT INFORMATION
  Report Type: Spontaneous
  Country: US (occurrence: US)
  Receive Date: 20241002
  Receipt Date: 20241002
  Transmission Date: 20250114
  Serious: Yes (Hospitalization, Other)
  Sender: MERCK
  Company Number: US-009507513-2409USA009118

PATIENT
  Age: 60 Year
  Sex: Female

DRUGS (1)
  1. KEYTRUDA [Suspect]
     Active Substance: PEMBROLIZUMAB
     Indication: Clear cell renal cell carcinoma
     Dosage: UNK

REACTIONS (4)
  - Myocarditis [Recovering/Resolving]
  - Myasthenia gravis [Recovering/Resolving]
  - Drug-induced liver injury [Recovering/Resolving]
  - Myositis [Recovering/Resolving]
